FAERS Safety Report 17808766 (Version 1)
Quarter: 2020Q2

REPORT INFORMATION
  Report Type: Spontaneous
  Country: US (occurrence: US)
  Receive Date: 20200520
  Receipt Date: 20200520
  Transmission Date: 20200714
  Serious: Yes (Other)
  Sender: FDA-Public Use
  Company Number: NVSC2020US135675

PATIENT
  Age: 60 Year
  Sex: Male

DRUGS (2)
  1. VANCOMYCIN [Suspect]
     Active Substance: VANCOMYCIN
     Indication: STAPHYLOCOCCAL INFECTION
     Dosage: UNK
     Route: 065
  2. SOLU-MEDROL [Concomitant]
     Active Substance: METHYLPREDNISOLONE SODIUM SUCCINATE
     Indication: BIOPSY KIDNEY
     Route: 065

REACTIONS (7)
  - Henoch-Schonlein purpura [Unknown]
  - Nephritis [Unknown]
  - Purpura [Unknown]
  - Renal impairment [Unknown]
  - Palpable purpura [Unknown]
  - Abdominal pain [Unknown]
  - Haematochezia [Unknown]
